FAERS Safety Report 4458237-1 (Version None)
Quarter: 2004Q3

REPORT INFORMATION
  Report Type: 
  Country: None (occurrence: None)
  Receive Date: 20040917
  Receipt Date: 20040309
  Transmission Date: 20050211
  Serious: Yes (Other)
  Sender: FDA-Public Use
  Company Number: US-JNJFOC-20040302437

PATIENT
  Age: 38 Year
  Sex: Female
  Weight: 83.9154 kg

DRUGS (6)
  1. TOPAMAX [Suspect]
     Indication: MIGRAINE
     Dosage: 600 MG, IN 1 DAY, ORAL
     Route: 048
     Dates: start: 20030101, end: 20040101
  2. ZOLOFT [Concomitant]
  3. NORVASC (AMLOIDPINE BESILATE) [Concomitant]
  4. THYOVAN (ALL OTHER THERAPEUTIC PRODUCTS) [Concomitant]
  5. DEPAKOTE [Concomitant]
  6. TRAZODONE HCL [Concomitant]

REACTIONS (2)
  - AMNESIA [None]
  - CONVULSION [None]
